FAERS Safety Report 7335612-9 (Version None)
Quarter: 2011Q1

REPORT INFORMATION
  Report Type: 
  Country: None (occurrence: None)
  Receive Date: 20110307
  Receipt Date: 20110228
  Transmission Date: 20110831
  Serious: Yes (Death, Hospitalization)
  Sender: FDA-Public Use
  Company Number: A0785710A

PATIENT
  Age: 60 Year
  Sex: Male

DRUGS (2)
  1. AVANDAMET [Suspect]
     Route: 065
     Dates: start: 20050318, end: 20050401
  2. AVANDIA [Suspect]
     Dosage: 4MG PER DAY
     Route: 065
     Dates: start: 20050401, end: 20060801

REACTIONS (1)
  - MYOCARDIAL ISCHAEMIA [None]
